FAERS Safety Report 9931399 (Version 1)
Quarter: 2014Q1

REPORT INFORMATION
  Report Type: Spontaneous
  Country: US (occurrence: US)
  Receive Date: 20140228
  Receipt Date: 20140228
  Transmission Date: 20141002
  Serious: No
  Sender: FDA-Public Use
  Company Number: US-BIOGENIDEC-2014BI019445

PATIENT
  Age: 53 Year
  Sex: Female

DRUGS (9)
  1. AVONEX [Suspect]
     Indication: MULTIPLE SCLEROSIS
     Route: 030
  2. AMANTADINE HCL [Concomitant]
  3. BACLOFEN [Concomitant]
  4. ETODOLAC [Concomitant]
  5. NORCO [Concomitant]
  6. PAROXETINE HCL [Concomitant]
  7. TOPIRAMATE [Concomitant]
  8. TRAZODONE HCL [Concomitant]
  9. VALTREX [Concomitant]

REACTIONS (2)
  - Nasopharyngitis [Unknown]
  - Influenza [Unknown]
